FAERS Safety Report 4440600-6 (Version None)
Quarter: 2004Q3

REPORT INFORMATION
  Report Type: 
  Country: None (occurrence: None)
  Receive Date: 20040901
  Receipt Date: 20040816
  Transmission Date: 20050211
  Serious: Yes (Hospitalization)
  Sender: FDA-Public Use
  Company Number: 601388

PATIENT
  Age: 69 Year
  Sex: Male
  Weight: 80 kg

DRUGS (5)
  1. GAMMAGARD S/D [Suspect]
     Indication: DEMYELINATING POLYNEUROPATHY
     Dosage: 50 GM; QD; INTRAVENOUS
     Route: 042
     Dates: start: 20040601, end: 20040602
  2. FUROSEMIDE [Concomitant]
  3. PREDNISOLONE [Concomitant]
  4. GABAPENTIN [Concomitant]
  5. STILNOCT [Concomitant]

REACTIONS (4)
  - AXILLARY VEIN THROMBOSIS [None]
  - BACK PAIN [None]
  - OEDEMA PERIPHERAL [None]
  - PULMONARY EMBOLISM [None]
